FAERS Safety Report 12364655 (Version 1)
Quarter: 2016Q2

REPORT INFORMATION
  Report Type: Spontaneous
  Country: US (occurrence: None)
  Receive Date: 20160512
  Receipt Date: 20160512
  Transmission Date: 20160815
  Serious: Yes (Hospitalization)
  Sender: FDA-Public Use
  Company Number: None

PATIENT
  Age: 64 Year
  Sex: Male
  Weight: 84.2 kg

DRUGS (1)
  1. METHYLPREDNISOLONE. [Suspect]
     Active Substance: METHYLPREDNISOLONE
     Dates: start: 20160302, end: 20160302

REACTIONS (6)
  - Delusion [None]
  - Refusal of treatment by patient [None]
  - Agitation [None]
  - Substance-induced psychotic disorder [None]
  - Confusional state [None]
  - Hallucination [None]

NARRATIVE: CASE EVENT DATE: 20160302
